FAERS Safety Report 7934255-3 (Version None)
Quarter: 2011Q4

REPORT INFORMATION
  Report Type: 
  Country: None (occurrence: None)
  Receive Date: 20111122
  Receipt Date: 20111121
  Transmission Date: 20120403
  Serious: Yes (Hospitalization, Other)
  Sender: FDA-Public Use
  Company Number: FR-JNJFOC-20111011563

PATIENT
  Age: 46 Year
  Sex: Male
  Weight: 75 kg

DRUGS (8)
  1. REMICADE [Suspect]
     Dosage: 4TH DOSE, 5 MG/KG (WEIGHT 75 KG)
     Route: 042
     Dates: start: 20110718
  2. PROZAC [Concomitant]
     Route: 048
  3. TRAMADOL HCL [Concomitant]
     Dosage: 50 MG X3 DAILY, IE: 550 MG DAILY OF TRAMADOL
     Route: 048
  4. REMICADE [Suspect]
     Indication: ANKYLOSING SPONDYLITIS
     Route: 042
  5. CONTRAMAL LP [Concomitant]
     Route: 048
  6. REMICADE [Suspect]
     Dosage: 5MG/KG (WEIGHT 71 KG)
     Route: 042
     Dates: start: 20110414
  7. REMICADE [Suspect]
     Dosage: 3RD INFUSION
     Route: 042
     Dates: start: 20110523
  8. ZYPREXA [Concomitant]
     Route: 048

REACTIONS (3)
  - KLEBSIELLA INFECTION [None]
  - INTERVERTEBRAL DISCITIS [None]
  - LUNG INFECTION [None]
